FAERS Safety Report 5727299-3 (Version None)
Quarter: 2008Q2

REPORT INFORMATION
  Report Type: 
  Country: None (occurrence: None)
  Receive Date: 20080505
  Receipt Date: 20080423
  Transmission Date: 20081010
  Serious: Yes (Hospitalization)
  Sender: FDA-Public Use
  Company Number: JP-AMGEN-US276363

PATIENT
  Age: 73 Year
  Sex: Female

DRUGS (1)
  1. ENBREL [Suspect]
     Indication: RHEUMATOID ARTHRITIS
     Dosage: 25 MG/WEEK, FOR 2 WEEKS TO 1 MONTH
     Route: 058
     Dates: start: 20060509

REACTIONS (2)
  - EPISTAXIS [None]
  - EYE HAEMORRHAGE [None]
